FAERS Safety Report 8495033-2 (Version None)
Quarter: 2012Q3

REPORT INFORMATION
  Report Type: 
  Country: None (occurrence: None)
  Receive Date: 20120709
  Receipt Date: 20120629
  Transmission Date: 20120928
  Serious: Yes (Hospitalization, Other)
  Sender: FDA-Public Use
  Company Number: PHHY2012US056329

PATIENT
  Sex: Male
  Weight: 64.853 kg

DRUGS (9)
  1. EXJADE [Suspect]
     Dosage: 1500 MG, QD
     Route: 048
  2. KLONOPIN [Concomitant]
     Indication: INSOMNIA
     Dosage: 0.5 MG, QD
     Route: 048
     Dates: start: 20040224, end: 20101118
  3. HEPARIN [Concomitant]
     Indication: THROMBOSIS PROPHYLAXIS
     Dosage: 10000 IU, TID
     Dates: start: 20090303, end: 20101213
  4. KADIAN [Concomitant]
     Indication: PAIN
     Dosage: 50 MG, BID
     Route: 048
     Dates: start: 20090707, end: 20110517
  5. FOLIC ACID [Concomitant]
     Indication: ANAEMIA
     Dosage: 1 MG, QD
     Route: 048
     Dates: end: 20101118
  6. PHENERGAN HCL [Concomitant]
     Indication: PROPHYLAXIS OF NAUSEA AND VOMITING
     Dosage: 1 DF, PRN
     Route: 048
     Dates: start: 20090311, end: 20110517
  7. RESTORIL [Concomitant]
     Indication: INSOMNIA
     Dosage: 30 MG, QD
     Dates: start: 20090101
  8. EXJADE [Suspect]
     Indication: IRON OVERLOAD
     Dosage: 1500 MG, QD
     Route: 048
     Dates: start: 20070721, end: 20100922
  9. HEPARIN [Concomitant]
     Dates: end: 20110301

REACTIONS (26)
  - OSTEOPOROSIS [None]
  - TIBIA FRACTURE [None]
  - OXYGEN SATURATION DECREASED [None]
  - DYSPNOEA [None]
  - PAINFUL RESPIRATION [None]
  - CLOSTRIDIUM DIFFICILE COLITIS [None]
  - FREQUENT BOWEL MOVEMENTS [None]
  - HAEMOGLOBIN DECREASED [None]
  - PNEUMONIA [None]
  - SINUS TACHYCARDIA [None]
  - SICKLE CELL ANAEMIA WITH CRISIS [None]
  - DILATATION VENTRICULAR [None]
  - ATRIOVENTRICULAR BLOCK COMPLETE [None]
  - ABDOMINAL WALL HAEMATOMA [None]
  - PULMONARY HYPERTENSION [None]
  - EJECTION FRACTION DECREASED [None]
  - STAPHYLOCOCCAL BACTERAEMIA [None]
  - BACK INJURY [None]
  - MUSCLE OEDEMA [None]
  - ARTHRALGIA [None]
  - ACNE [None]
  - RASH [None]
  - CHEST PAIN [None]
  - PYREXIA [None]
  - ARTERIAL THROMBOSIS LIMB [None]
  - SPINAL DEFORMITY [None]
